FAERS Safety Report 7707031-4 (Version None)
Quarter: 2011Q3

REPORT INFORMATION
  Report Type: 
  Country: None (occurrence: None)
  Receive Date: 20110804
  Receipt Date: 20110426
  Transmission Date: 20111222
  Serious: No
  Sender: FDA-Public Use
  Company Number: 2011-05767

PATIENT
  Age: 66 Year
  Sex: Male
  Weight: 113.4 kg

DRUGS (2)
  1. RAPAFLO [Suspect]
     Indication: PROSTATOMEGALY
     Dosage: 1 CAPSULE DAILY, ORAL
     Route: 048
     Dates: start: 20110418
  2. METOPROLOL TARTRATE [Concomitant]

REACTIONS (1)
  - DRUG INEFFECTIVE [None]
